FAERS Safety Report 9989215 (Version 1)
Quarter: 2014Q1

REPORT INFORMATION
  Report Type: Spontaneous
  Country: US (occurrence: US)
  Receive Date: 20140310
  Receipt Date: 20140310
  Transmission Date: 20141002
  Serious: Yes (Hospitalization)
  Sender: FDA-Public Use
  Company Number: US-BAYER-2014-033952

PATIENT
  Age: 24 Year
  Sex: Female
  Weight: 98 kg

DRUGS (6)
  1. YASMIN [Suspect]
  2. PRENATAL VITAMINS [Concomitant]
  3. SULFAMETHOXAZOLE/TRIMETHOPRIM [Concomitant]
     Indication: CYSTITIS
  4. BENADRYL [Concomitant]
     Indication: RASH
     Dosage: UNK
     Dates: start: 20041205
  5. SEPTRA [Concomitant]
  6. DEPAKOTE [Concomitant]
     Dosage: 250 MG, UNK

REACTIONS (1)
  - Deep vein thrombosis [None]
